FAERS Safety Report 21382118 (Version 1)
Quarter: 2022Q3

REPORT INFORMATION
  Report Type: Spontaneous
  Country: US (occurrence: None)
  Receive Date: 20220926
  Receipt Date: 20220926
  Transmission Date: 20221026
  Serious: No
  Sender: FDA-Public Use
  Company Number: None

PATIENT
  Sex: Female

DRUGS (12)
  1. AMBRISENTAN [Suspect]
     Active Substance: AMBRISENTAN
     Indication: Pulmonary arterial hypertension
     Dosage: FREQUENCY : DAILY;?
     Route: 048
  2. FAMOTIDINE [Concomitant]
     Active Substance: FAMOTIDINE
  3. LETAIRIS [Concomitant]
     Active Substance: AMBRISENTAN
  4. ADCIRCA [Concomitant]
     Active Substance: TADALAFIL
  5. LORATADINE [Concomitant]
     Active Substance: LORATADINE
  6. VITAMIN D3 MAXIMUM STRENG [Concomitant]
  7. MULTIVITAMIN ADULTS [Concomitant]
  8. UPTRAVI [Concomitant]
     Active Substance: SELEXIPAG
  9. VITAMIN D [Concomitant]
     Active Substance: VITAMIN D NOS
  10. MIDODRINE HYDROCHLORIDE [Concomitant]
     Active Substance: MIDODRINE HYDROCHLORIDE
  11. RENVELA [Concomitant]
     Active Substance: SEVELAMER CARBONATE
  12. NORC [Concomitant]

REACTIONS (2)
  - Hypertension [None]
  - Therapy interrupted [None]
